FAERS Safety Report 15169994 (Version 1)
Quarter: 2018Q3

REPORT INFORMATION
  Report Type: Spontaneous
  Country: US (occurrence: US)
  Receive Date: 20180720
  Receipt Date: 20180720
  Transmission Date: 20181010
  Serious: No
  Sender: FDA-Public Use
  Company Number: US-PFIZER INC-2018285469

PATIENT
  Sex: Female

DRUGS (1)
  1. PROTONIX [Suspect]
     Active Substance: PANTOPRAZOLE SODIUM
     Indication: ULCER
     Dosage: 40 MG, 1X/DAY

REACTIONS (1)
  - Osteoporosis [Unknown]
